FAERS Safety Report 5987537-9 (Version None)
Quarter: 2008Q4

REPORT INFORMATION
  Report Type: 
  Country: None (occurrence: None)
  Receive Date: 20081209
  Receipt Date: 20081201
  Transmission Date: 20090506
  Serious: Yes (Other)
  Sender: FDA-Public Use
  Company Number: GB-ALLERGAN-0814556US

PATIENT
  Sex: Female
  Weight: 82.54 kg

DRUGS (4)
  1. BOTOX [Suspect]
     Indication: SKIN WRINKLING
     Dosage: 56 UNITS, SINGLE
     Route: 030
     Dates: start: 20080903, end: 20080903
  2. BOTOX [Suspect]
     Dosage: 5 UNITS, SINGLE
     Route: 030
     Dates: start: 20081014, end: 20081014
  3. HORMONIN [Concomitant]
     Indication: HORMONE REPLACEMENT THERAPY
     Dosage: 5 MG, QD
     Route: 048
  4. AMLODIPINE [Concomitant]
     Indication: BLOOD PRESSURE
     Dosage: 5 MG, QD

REACTIONS (5)
  - DIZZINESS [None]
  - DRY MOUTH [None]
  - HEADACHE [None]
  - INAPPROPRIATE AFFECT [None]
  - THIRST [None]
